FAERS Safety Report 24168368 (Version 3)
Quarter: 2024Q3

REPORT INFORMATION
  Report Type: Spontaneous
  Country: JP (occurrence: JP)
  Receive Date: 20240802
  Receipt Date: 20240919
  Transmission Date: 20241016
  Serious: Yes (Other)
  Sender: JOHNSON AND JOHNSON
  Company Number: JP-JNJFOC-20220319070

PATIENT
  Age: 55 Year
  Sex: Male

DRUGS (5)
  1. INVEGA [Suspect]
     Active Substance: PALIPERIDONE
     Indication: Schizoaffective disorder
     Route: 048
  2. INVEGA [Suspect]
     Active Substance: PALIPERIDONE
     Dosage: 9MG IN THE MORNING,3MG IN THE AFTERNOON
     Route: 048
  3. INVEGA [Suspect]
     Active Substance: PALIPERIDONE
     Dosage: DOSE UNKNOWN,IN (THE MIDDLE OF) THE NIGHT
     Route: 048
  4. INVEGA [Suspect]
     Active Substance: PALIPERIDONE
     Dosage: SUSTAINED-RELEASE TABLET
     Route: 048
  5. INVEGA [Suspect]
     Active Substance: PALIPERIDONE
     Dosage: IN THE MORNING
     Route: 048

REACTIONS (8)
  - Suicide attempt [Recovered/Resolved]
  - Intentional overdose [Recovered/Resolved]
  - Hordeolum [Unknown]
  - Thirst [Unknown]
  - Motor dysfunction [Unknown]
  - Treatment noncompliance [Unknown]
  - Inappropriate schedule of product administration [Unknown]
  - Off label use [Unknown]
